FAERS Safety Report 23707934 (Version 1)
Quarter: 2024Q2

REPORT INFORMATION
  Report Type: Spontaneous
  Country: NL (occurrence: NL)
  Receive Date: 20240404
  Receipt Date: 20240404
  Transmission Date: 20240715
  Serious: Yes (Other)
  Sender: FDA-Public Use
  Company Number: None

PATIENT
  Age: 47 Year
  Sex: Female

DRUGS (1)
  1. DOXYCYCLINE [Suspect]
     Active Substance: DOXYCYCLINE
     Indication: Antibiotic prophylaxis
     Dosage: 1 PIECE TWICE A DAY; DOXYCYCLINE DISPERTABLET / BRAND NAME NOT SPECIFIED
     Route: 065
     Dates: start: 20231215

REACTIONS (1)
  - Oesophagitis chemical [Recovered/Resolved]
